FAERS Safety Report 4545134-6 (Version None)
Quarter: 2005Q1

REPORT INFORMATION
  Report Type: 
  Country: None (occurrence: None)
  Receive Date: 20050103
  Receipt Date: 20050103
  Transmission Date: 20050727
  Serious: No
  Sender: FDA-Public Use
  Company Number: None

PATIENT
  Age: 64 Year
  Sex: Female

DRUGS (2)
  1. GLEEVEC [Suspect]
     Indication: CERVIX CANCER METASTATIC
     Dosage: 600 MG D1-4 PER WEEK
  2. PACLITAXEL [Suspect]
     Indication: CERVIX CANCER METASTATIC
     Dosage: 100 MG Q WK X 3/4

REACTIONS (5)
  - ABDOMINAL PAIN [None]
  - CATHETER RELATED COMPLICATION [None]
  - FATIGUE [None]
  - PURULENT DISCHARGE [None]
  - URINE OUTPUT DECREASED [None]
